FAERS Safety Report 12471157 (Version 1)
Quarter: 2016Q2

REPORT INFORMATION
  Report Type: Spontaneous
  Country: US (occurrence: None)
  Receive Date: 20160615
  Receipt Date: 20160615
  Transmission Date: 20160815
  Serious: No
  Sender: FDA-Public Use
  Company Number: None

PATIENT
  Age: 59 Year
  Sex: Male

DRUGS (9)
  1. COSENTYX [Suspect]
     Active Substance: SECUKINUMAB
     Indication: PSORIATIC ARTHROPATHY
     Dosage: Q4W
     Route: 058
     Dates: start: 20160225
  2. NABUMETONE. [Concomitant]
     Active Substance: NABUMETONE
  3. VIIBRYD [Concomitant]
     Active Substance: VILAZODONE HYDROCHLORIDE
  4. ACYCLOVIR. [Concomitant]
     Active Substance: ACYCLOVIR
  5. FOLIC ACID. [Concomitant]
     Active Substance: FOLIC ACID
  6. MS CONTIN [Concomitant]
     Active Substance: MORPHINE SULFATE
  7. AXIRON [Concomitant]
     Active Substance: TESTOSTERONE
  8. PANTOPRAZOLE [Concomitant]
     Active Substance: PANTOPRAZOLE SODIUM
  9. NORCO [Concomitant]
     Active Substance: ACETAMINOPHEN\HYDROCODONE BITARTRATE

REACTIONS (1)
  - Condition aggravated [None]

NARRATIVE: CASE EVENT DATE: 201602
